FAERS Safety Report 16128013 (Version 2)
Quarter: 2019Q4

REPORT INFORMATION
  Report Type: Spontaneous
  Country: FR (occurrence: FR)
  Receive Date: 20190328
  Receipt Date: 20191017
  Transmission Date: 20200122
  Serious: Yes (Other)
  Sender: FDA-Public Use
  Company Number: PHHY2019FR068241

PATIENT
  Age: 30 Year
  Sex: Male

DRUGS (1)
  1. ETANERCEPT [Suspect]
     Active Substance: ETANERCEPT
     Indication: ANKYLOSING SPONDYLITIS
     Dosage: UNK
     Route: 065

REACTIONS (5)
  - Muscular sarcoidosis [Unknown]
  - Myalgia [Unknown]
  - Pain in extremity [Unknown]
  - Angiotensin converting enzyme increased [Unknown]
  - Lymphadenopathy mediastinal [Unknown]
